FAERS Safety Report 9089232 (Version 1)
Quarter: 2013Q1

REPORT INFORMATION
  Report Type: Spontaneous
  Country: JP (occurrence: JP)
  Receive Date: 20130201
  Receipt Date: 20130201
  Transmission Date: 20140127
  Serious: Yes (Hospitalization, Other)
  Sender: FDA-Public Use
  Company Number: PHHY2012JP116019

PATIENT
  Age: 68 Year
  Sex: Male

DRUGS (1)
  1. TEGRETOL [Suspect]
     Indication: EPILEPSY
     Dosage: 200 MG, DAILY
     Route: 048
     Dates: start: 20121015, end: 20121210

REACTIONS (5)
  - Drug reaction with eosinophilia and systemic symptoms [Unknown]
  - Pneumonia [Unknown]
  - Erythema [Unknown]
  - Drug eruption [Unknown]
  - Brain neoplasm [Unknown]
